FAERS Safety Report 5176263-4 (Version None)
Quarter: 2006Q4

REPORT INFORMATION
  Report Type: 
  Country: None (occurrence: None)
  Receive Date: 20061127
  Receipt Date: 20061106
  Transmission Date: 20070319
  Serious: Yes (Life-Threatening, Hospitalization)
  Sender: FDA-Public Use
  Company Number: GAM-128-06-FR

PATIENT
  Age: 55 Year
  Sex: Male

DRUGS (4)
  1. OCTAGAM [Suspect]
     Indication: HYPOGAMMAGLOBULINAEMIA
     Dosage: 25 G, I.V.
     Route: 042
     Dates: start: 20060910, end: 20060910
  2. FUROSEMIDE [Concomitant]
  3. HYDROCORTISONE [Concomitant]
  4. DEXCHLORPHENIRAMINE MALEATE [Concomitant]

REACTIONS (15)
  - ALANINE AMINOTRANSFERASE INCREASED [None]
  - ASPARTATE AMINOTRANSFERASE INCREASED [None]
  - BLOOD ALKALINE PHOSPHATASE INCREASED [None]
  - CARDIAC VALVE DISEASE [None]
  - CHOLESTASIS [None]
  - DIARRHOEA [None]
  - EJECTION FRACTION DECREASED [None]
  - HYPOKINESIA [None]
  - MYOCARDITIS [None]
  - OEDEMA PERIPHERAL [None]
  - PERICARDIAL EFFUSION [None]
  - PLEURAL EFFUSION [None]
  - VENTRICULAR HYPERTROPHY [None]
  - VENTRICULAR HYPOKINESIA [None]
  - VOMITING [None]
